FAERS Safety Report 5066862-2 (Version None)
Quarter: 2006Q3

REPORT INFORMATION
  Report Type: 
  Country: None (occurrence: None)
  Receive Date: 20060726
  Receipt Date: 20060718
  Transmission Date: 20061208
  Serious: Yes (Life-Threatening)
  Sender: FDA-Public Use
  Company Number: DE-2006-019526

PATIENT
  Age: 82 Year
  Sex: Female
  Weight: 100 kg

DRUGS (1)
  1. ULTRAVIST 370 [Suspect]
     Indication: COMPUTERISED TOMOGRAM
     Dosage: 80 ML, 1 DOSE, INTRAVENOUS
     Route: 042
     Dates: start: 20060717, end: 20060717

REACTIONS (2)
  - CARDIAC VALVE DISEASE [None]
  - RESPIRATORY ARREST [None]
